FAERS Safety Report 7755719-1 (Version None)
Quarter: 2011Q3

REPORT INFORMATION
  Report Type: 
  Country: None (occurrence: None)
  Receive Date: 20110916
  Receipt Date: 20110907
  Transmission Date: 20111222
  Serious: Yes (Disabling, Other)
  Sender: FDA-Public Use
  Company Number: PHHY2011GB81852

PATIENT
  Age: 73 Year
  Sex: Male

DRUGS (17)
  1. ATORVASTATIN [Concomitant]
     Dosage: 80 MG,
  2. CHLORPHENIRAMINE MALEATE [Concomitant]
     Dosage: 4 MG, QID
  3. WARFARIN SODIUM [Concomitant]
  4. AQUEOUS CREAM [Concomitant]
  5. BUMETANIDE [Concomitant]
     Dosage: 1 MG,
  6. NICORANDIL [Concomitant]
     Dosage: 30 MG, TID
  7. AMLODIPINE [Concomitant]
     Dosage: 5 MG,PER DAY
  8. RAMIPRIL [Concomitant]
     Dosage: 5 MG, TID
  9. METOPROLOL TARTRATE [Suspect]
     Indication: ANGINA PECTORIS
     Dosage: 50 MG,
     Route: 048
     Dates: start: 19980101
  10. LANSOPRAZOLE [Concomitant]
     Dosage: 30 MG,
  11. METOPROLOL TARTRATE [Suspect]
     Dosage: 200 MG, BID
     Route: 048
     Dates: end: 20110823
  12. ALLOPURINOL [Concomitant]
     Dosage: 20 MG,
  13. ASPIRIN [Concomitant]
     Dosage: 75 MG,
  14. FINASTERIDE [Concomitant]
     Dosage: 5 MG,
  15. NITROGLYCERIN [Concomitant]
     Dosage: 60 MG,
  16. LEVOTHYROXINE SODIUM [Concomitant]
     Dosage: 125 UG,
  17. ISOSORBIDE MONONITRATE [Concomitant]
     Dosage: 60 MG,

REACTIONS (1)
  - DEAFNESS UNILATERAL [None]
